FAERS Safety Report 8509270-1 (Version None)
Quarter: 2012Q3

REPORT INFORMATION
  Report Type: 
  Country: None (occurrence: None)
  Receive Date: 20120713
  Receipt Date: 20120705
  Transmission Date: 20120928
  Serious: Yes (Life-Threatening, Hospitalization)
  Sender: FDA-Public Use
  Company Number: AU-ROCHE-1082396

PATIENT
  Sex: Male
  Weight: 85 kg

DRUGS (3)
  1. AVASTIN [Suspect]
     Indication: COLON CANCER METASTATIC
     Route: 042
     Dates: start: 20110531
  2. AVASTIN [Suspect]
     Dates: start: 20111012, end: 20120614
  3. XELODA [Concomitant]
     Indication: COLON CANCER METASTATIC
     Route: 048
     Dates: start: 20120419

REACTIONS (3)
  - BLOOD PRESSURE INCREASED [None]
  - APHASIA [None]
  - CEREBROVASCULAR ACCIDENT [None]
